FAERS Safety Report 25595862 (Version 1)
Quarter: 2025Q3

REPORT INFORMATION
  Report Type: Spontaneous
  Country: GB (occurrence: GB)
  Receive Date: 20250723
  Receipt Date: 20250723
  Transmission Date: 20251020
  Serious: Yes (Other)
  Sender: Unknown Manufacturer
  Company Number: None

PATIENT
  Age: 63 Year
  Sex: Female

DRUGS (1)
  1. ATORVASTATIN [Suspect]
     Active Substance: ATORVASTATIN
     Indication: Product used for unknown indication

REACTIONS (5)
  - Headache [Not Recovered/Not Resolved]
  - Dyspepsia [Not Recovered/Not Resolved]
  - Myalgia [Not Recovered/Not Resolved]
  - Flatulence [Not Recovered/Not Resolved]
  - Fatigue [Not Recovered/Not Resolved]
